FAERS Safety Report 7542514-1 (Version None)
Quarter: 2011Q2

REPORT INFORMATION
  Report Type: 
  Country: None (occurrence: None)
  Receive Date: 20110524
  Receipt Date: 20110131
  Transmission Date: 20111010
  Serious: No
  Sender: FDA-Public Use
  Company Number: 016860

PATIENT
  Sex: Female
  Weight: 111.6 kg

DRUGS (7)
  1. HYDROCODONE [Concomitant]
  2. METHOTREXATE [Concomitant]
  3. ZANTAC /00550802/ [Concomitant]
  4. FOLIC ACID [Concomitant]
  5. CIMZIA [Suspect]
     Indication: RHEUMATOID ARTHRITIS
     Dosage: 400 MG UNSPECIFIED SUBCUTANEOUS
     Route: 058
     Dates: start: 20100801, end: 20110111
  6. SULINDAC [Concomitant]
  7. XANAX [Concomitant]

REACTIONS (3)
  - PAIN [None]
  - BLOOD GLUCOSE INCREASED [None]
  - JOINT SWELLING [None]
